FAERS Safety Report 15114650 (Version 1)
Quarter: 2018Q3

REPORT INFORMATION
  Report Type: Spontaneous
  Country: CA (occurrence: CA)
  Receive Date: 20180706
  Receipt Date: 20180706
  Transmission Date: 20181010
  Serious: Yes (Life-Threatening, Hospitalization, Other)
  Sender: FDA-Public Use
  Company Number: CA-APOTEX-2018AP017038

PATIENT
  Age: 16 Year
  Sex: Male

DRUGS (7)
  1. PREDNISONE. [Suspect]
     Active Substance: PREDNISONE
     Dosage: 7.5 MG, DAILY
     Route: 048
  2. BASILIXIMAB [Suspect]
     Active Substance: BASILIXIMAB
     Indication: IMMUNOSUPPRESSION
     Dosage: 12 MG/M2, TWO DOSE
     Route: 065
  3. MYCO[PHENOLATE [Suspect]
     Active Substance: MYCOPHENOLATE MOFETIL
     Dosage: 500 MG, BID
     Route: 065
  4. TACROLIMUS. [Suspect]
     Active Substance: TACROLIMUS
     Indication: IMMUNOSUPPRESSION
     Dosage: DECREASED FROM 10?12 MCG PER L TO 8?10 MCG PER L
     Route: 065
  5. METHYLPREDNISOLONE. [Suspect]
     Active Substance: METHYLPREDNISOLONE
     Indication: IMMUNOSUPPRESSION
     Dosage: INITIAL DOSE OF 2.5 MG/KG/DOSE EVERY 6 HOURS
     Route: 065
  6. PREDNISONE. [Suspect]
     Active Substance: PREDNISONE
     Indication: IMMUNOSUPPRESSION
     Dosage: 10 MG, DAILY
     Route: 048
  7. MYCO[PHENOLATE [Suspect]
     Active Substance: MYCOPHENOLATE MOFETIL
     Indication: IMMUNOSUPPRESSION
     Dosage: 750 MG, BID
     Route: 065

REACTIONS (6)
  - Toxicity to various agents [Unknown]
  - Hyperglycaemia [Unknown]
  - Catheter site infection [Recovered/Resolved]
  - Polyomavirus-associated nephropathy [Unknown]
  - Mucormycosis [Recovered/Resolved]
  - Renal tubular necrosis [Unknown]
